FAERS Safety Report 21158397 (Version 1)
Quarter: 2022Q3

REPORT INFORMATION
  Report Type: Spontaneous
  Country: US (occurrence: US)
  Receive Date: 20220801
  Receipt Date: 20220801
  Transmission Date: 20221027
  Serious: No
  Sender: FDA-Public Use
  Company Number: US-ELI_LILLY_AND_COMPANY-US202207008674

PATIENT
  Sex: Female

DRUGS (4)
  1. RETEVMO [Suspect]
     Active Substance: SELPERCATINIB
     Indication: Non-small cell lung cancer
     Dosage: 80 MG, BID
     Route: 048
     Dates: start: 20220529
  2. RETEVMO [Suspect]
     Active Substance: SELPERCATINIB
     Dosage: 160 MG, BID
     Route: 048
     Dates: start: 20220531
  3. RETEVMO [Suspect]
     Active Substance: SELPERCATINIB
     Dosage: 80 MG, BID
     Route: 048
     Dates: start: 20220529
  4. ADVIL [Concomitant]
     Active Substance: IBUPROFEN
     Indication: Headache
     Dosage: UNK, UNKNOWN
     Route: 065
     Dates: end: 20220611

REACTIONS (5)
  - Thrombocytopenia [Recovered/Resolved]
  - Haemoptysis [Recovered/Resolved]
  - Liver function test abnormal [Recovered/Resolved]
  - Hypertension [Recovered/Resolved]
  - Rash [Recovered/Resolved]
